FAERS Safety Report 10446234 (Version 2)
Quarter: 2014Q4

REPORT INFORMATION
  Report Type: Spontaneous
  Country: US (occurrence: US)
  Receive Date: 20140911
  Receipt Date: 20141027
  Transmission Date: 20150528
  Serious: Yes (Hospitalization, Other)
  Sender: FDA-Public Use
  Company Number: US-AMGEN-USASP2014068758

PATIENT
  Age: 65 Year
  Sex: Female

DRUGS (1)
  1. ENBREL [Suspect]
     Active Substance: ETANERCEPT
     Indication: PSORIATIC ARTHROPATHY
     Dosage: 50 MG, QWK
     Route: 065
     Dates: start: 19961001

REACTIONS (5)
  - Humerus fracture [Recovered/Resolved]
  - Deafness [Not Recovered/Not Resolved]
  - Hand fracture [Recovered/Resolved]
  - Visual impairment [Not Recovered/Not Resolved]
  - Clavicle fracture [Recovered/Resolved]
